FAERS Safety Report 10439662 (Version 10)
Quarter: 2015Q2

REPORT INFORMATION
  Report Type: Spontaneous
  Country: AU (occurrence: AU)
  Receive Date: 20140908
  Receipt Date: 20150515
  Transmission Date: 20150821
  Serious: Yes (Life-Threatening, Hospitalization, Other)
  Sender: FDA-Public Use
  Company Number: AU-PFIZER INC-2014242872

PATIENT
  Age: 47 Year
  Sex: Female
  Weight: 63 kg

DRUGS (16)
  1. EFFEXOR XR [Suspect]
     Active Substance: VENLAFAXINE HYDROCHLORIDE
     Dosage: 150 MG, DAILY
     Dates: start: 201311
  2. EFFEXOR XR [Suspect]
     Active Substance: VENLAFAXINE HYDROCHLORIDE
     Dosage: 150 MG, UNK
     Dates: start: 2014, end: 2014
  3. SPORANOX [Concomitant]
     Active Substance: ITRACONAZOLE\SODIUM CHLORIDE
     Indication: TINEA VERSICOLOUR
     Dosage: UNK
     Dates: start: 2013
  4. IBUPROFEN. [Concomitant]
     Active Substance: IBUPROFEN
     Dosage: UNK
  5. EFFEXOR XR [Suspect]
     Active Substance: VENLAFAXINE HYDROCHLORIDE
     Dosage: 300 MG, DAILY
  6. EFFEXOR XR [Suspect]
     Active Substance: VENLAFAXINE HYDROCHLORIDE
     Dosage: 225 MG, 1X/DAY
     Dates: start: 2014, end: 2014
  7. FEXOFENADINE [Concomitant]
     Active Substance: FEXOFENADINE\FEXOFENADINE HYDROCHLORIDE
     Indication: SEASONAL ALLERGY
     Dosage: UNK
  8. ATIVAN [Concomitant]
     Active Substance: LORAZEPAM
     Dosage: UNK, AS NEEDED
  9. EFFEXOR XR [Suspect]
     Active Substance: VENLAFAXINE HYDROCHLORIDE
     Indication: MAJOR DEPRESSION
     Dosage: 375 MG, DAILY
     Dates: start: 201211
  10. EFFEXOR XR [Suspect]
     Active Substance: VENLAFAXINE HYDROCHLORIDE
     Dosage: 300 MG, DAILY
     Dates: start: 2014, end: 2014
  11. EFFEXOR XR [Suspect]
     Active Substance: VENLAFAXINE HYDROCHLORIDE
     Dosage: 112.5 MG, DAILY
     Dates: start: 2014, end: 2014
  12. RIKODEINE [Suspect]
     Active Substance: DIHYDROCODEINE BITARTRATE
     Dosage: UNK
     Dates: start: 2014, end: 201408
  13. COLOXYL [Concomitant]
     Active Substance: DOCUSATE SODIUM
     Dosage: UNK
  14. EFFEXOR XR [Suspect]
     Active Substance: VENLAFAXINE HYDROCHLORIDE
     Dosage: 75 MG, DAILY
     Dates: start: 20141031
  15. FEXOFENADINE [Concomitant]
     Active Substance: FEXOFENADINE\FEXOFENADINE HYDROCHLORIDE
     Indication: HYPERSENSITIVITY
  16. PANADOL EXTRA STRENGTH [Concomitant]
     Active Substance: ACETAMINOPHEN
     Dosage: UNK

REACTIONS (33)
  - Haemorrhage [Unknown]
  - Restlessness [Unknown]
  - Decreased appetite [Unknown]
  - Irritability [Unknown]
  - Restless legs syndrome [Unknown]
  - Agitation [Unknown]
  - Temporomandibular joint syndrome [Unknown]
  - Fatigue [Unknown]
  - Restless legs syndrome [Unknown]
  - Iron deficiency [Unknown]
  - Drug dependence [Recovered/Resolved]
  - Pain in jaw [Unknown]
  - Tooth fracture [Unknown]
  - Tobacco user [Recovered/Resolved]
  - Sleep disorder [Unknown]
  - Uterine leiomyoma [Unknown]
  - Polysubstance dependence [Recovered/Resolved]
  - Activities of daily living impaired [Recovered/Resolved]
  - Malaise [Unknown]
  - Neck pain [Unknown]
  - Breast cancer [Unknown]
  - Compulsive shopping [Recovered/Resolved]
  - Hyperphagia [Unknown]
  - Abnormal behaviour [Unknown]
  - Headache [Unknown]
  - Musculoskeletal pain [Unknown]
  - Mood altered [Unknown]
  - Vertigo [Unknown]
  - Candida infection [Unknown]
  - Bruxism [Unknown]
  - Visual impairment [Unknown]
  - Tension [Unknown]
  - Dizziness [Unknown]

NARRATIVE: CASE EVENT DATE: 201211
